FAERS Safety Report 6531739-X (Version None)
Quarter: 2010Q1

REPORT INFORMATION
  Report Type: 
  Country: None (occurrence: None)
  Receive Date: 20100107
  Receipt Date: 20100107
  Transmission Date: 20100710
  Serious: Yes (Other)
  Sender: FDA-Public Use
  Company Number: None

PATIENT
  Age: 55 Year
  Sex: Male
  Weight: 74.8435 kg

DRUGS (1)
  1. CHANTIX [Suspect]
     Indication: SMOKING CESSATION THERAPY
     Dosage: FIRST 4 DAYS 5MG/CONTINUE
     Dates: start: 20090209, end: 20090320

REACTIONS (4)
  - MOOD ALTERED [None]
  - PARTNER STRESS [None]
  - THINKING ABNORMAL [None]
  - UNEVALUABLE EVENT [None]
